FAERS Safety Report 9357012 (Version 1)
Quarter: 2013Q2

REPORT INFORMATION
  Report Type: Spontaneous
  Country: PL (occurrence: PL)
  Receive Date: 20130620
  Receipt Date: 20130620
  Transmission Date: 20140414
  Serious: Yes (Other)
  Sender: FDA-Public Use
  Company Number: PL-BAYER-2013-075840

PATIENT
  Sex: Female

DRUGS (1)
  1. INTERFERON BETA - 1B [Suspect]
     Indication: MULTIPLE SCLEROSIS
     Dosage: UNK

REACTIONS (2)
  - Abasia [None]
  - Multiple sclerosis [None]
